FAERS Safety Report 16330384 (Version 1)
Quarter: 2019Q2

REPORT INFORMATION
  Report Type: Spontaneous
  Country: US (occurrence: US)
  Receive Date: 20190520
  Receipt Date: 20190520
  Transmission Date: 20190711
  Serious: Yes (Hospitalization, Other)
  Sender: FDA-Public Use
  Company Number: US-SA-2019SA134160

PATIENT
  Age: 67 Year
  Sex: Male
  Weight: 85.7 kg

DRUGS (38)
  1. DELTASONE [PREDNISONE] [Concomitant]
     Dosage: 60 MG, QD
  2. DELTASONE [PREDNISONE] [Concomitant]
     Dosage: 40 MG, QD
  3. OXYCODONE [Concomitant]
     Active Substance: OXYCODONE
     Dosage: 5 MG, Q6H
  4. NEURONTIN [Concomitant]
     Active Substance: GABAPENTIN
     Dosage: 900 MG
  5. CELECOXIB. [Concomitant]
     Active Substance: CELECOXIB
     Dosage: 200 MG, QD
  6. LATANOPROST. [Concomitant]
     Active Substance: LATANOPROST
     Dosage: 1 DROP, HS
  7. PRAVACHOL [Concomitant]
     Active Substance: PRAVASTATIN SODIUM
     Dosage: 80 MG, HS
  8. DELTASONE [PREDNISONE] [Concomitant]
     Dosage: 30 MG, QD
  9. DELTASONE [PREDNISONE] [Concomitant]
     Dosage: TAKE 3 TABLET BY MOUTH DAILY FOR 5 DAYS, THEN 2 TABLETS DAILY FOR 30 DAYS. TAKE WITH FOOD
  10. NEURONTIN [Concomitant]
     Active Substance: GABAPENTIN
     Dosage: 1200 MG, QD
     Route: 048
  11. GADOBUTROL. [Concomitant]
     Active Substance: GADOBUTROL
     Dosage: 0.25-15 ML ONCE IN PROCEDURE
  12. COZAAR [Concomitant]
     Active Substance: LOSARTAN POTASSIUM
     Dosage: 50 MG, QD
  13. SULFAMETHOXAZOLE;TRIMETHOPRIM [Concomitant]
     Active Substance: SULFAMETHOXAZOLE\TRIMETHOPRIM
     Dosage: 800-160 MG ORAL TABLET 1 TABLET BY MOUTH DAILY
     Route: 048
  14. VESICARE [Concomitant]
     Active Substance: SOLIFENACIN SUCCINATE
     Dosage: 1 DF, QD
     Route: 048
  15. VITAMIN D3 [Concomitant]
     Active Substance: CHOLECALCIFEROL
     Route: 048
  16. DUPIXENT [Suspect]
     Active Substance: DUPILUMAB
     Indication: ASTHMA
     Dosage: UNK
     Dates: start: 20181205
  17. LIPITOR [Concomitant]
     Active Substance: ATORVASTATIN CALCIUM
  18. ECOTRIN [Concomitant]
     Active Substance: ASPIRIN
     Dosage: 81 MG, QD
     Route: 048
  19. MULTIVITAMIN [VITAMINS NOS] [Concomitant]
     Dosage: 1 DF, QD
     Route: 048
  20. HEPARIN [Concomitant]
     Active Substance: HEPARIN SODIUM
     Indication: PROPHYLAXIS
     Dosage: `5000 U, BID
  21. INSULIN LISPRO [Concomitant]
     Active Substance: INSULIN LISPRO
     Dosage: 1-12 UNITS BEFORE MEAL S AND NIGHTLY
  22. FLUTICASONE PROPIONATE;SALMETEROL [Concomitant]
     Dosage: 1 PUFF 2 TIMES PER DAY
  23. ONDANSETRON [Concomitant]
     Active Substance: ONDANSETRON
     Dosage: 4 MG, Q4H
  24. PRILOSEC [Concomitant]
     Active Substance: OMEPRAZOLE MAGNESIUM
     Dosage: TAKE 3 TABLETS BY MOUTH DAILY FOR 5 DAYS, THEN 2 TABLETS DAILY FOR 30 DAYS. TAKE WITH FOOD
  25. DELTASONE [PREDNISONE] [Concomitant]
     Dosage: 7.5 MG, QD
  26. CYMBALTA [Concomitant]
     Active Substance: DULOXETINE HYDROCHLORIDE
     Dosage: 120 MG, Q6H
  27. PANTOPRAZOLE [Concomitant]
     Active Substance: PANTOPRAZOLE
     Dosage: 40 MG, QD
  28. PRILOSEC [Concomitant]
     Active Substance: OMEPRAZOLE MAGNESIUM
     Dosage: 20 MG, QD
     Route: 048
  29. CYMBALTA [Concomitant]
     Active Substance: DULOXETINE HYDROCHLORIDE
     Dosage: 120 MG, QD
     Route: 048
  30. FLOMAX [Concomitant]
     Active Substance: TAMSULOSIN HYDROCHLORIDE
     Dosage: 0.4 MG, QD
     Route: 048
  31. TOLTERODINE [Concomitant]
     Active Substance: TOLTERODINE
     Dosage: 4 MG, QD
  32. GLUCAGON. [Concomitant]
     Active Substance: GLUCAGON
     Dosage: 1 MG, PRN
  33. ACETAMINOPHEN. [Concomitant]
     Active Substance: ACETAMINOPHEN
     Dosage: 650 MG, Q6H
  34. FAMOTIDINE. [Concomitant]
     Active Substance: FAMOTIDINE
     Dosage: 20 MG, BID
  35. NACL [Concomitant]
     Active Substance: SODIUM CHLORIDE
     Dosage: 2 ML, PRN
  36. SOLU-MEDROL [Concomitant]
     Active Substance: METHYLPREDNISOLONE SODIUM SUCCINATE
  37. OS CAL [CALCIUM CARBONATE] [Concomitant]
     Dosage: 1 DF, BID
     Route: 048
  38. FLOMAX [Concomitant]
     Active Substance: TAMSULOSIN HYDROCHLORIDE
     Dosage: 0.8 MG QAM

REACTIONS (19)
  - Cardiac disorder [Recovering/Resolving]
  - Syncope [Recovering/Resolving]
  - Pericardial effusion [Unknown]
  - Ejection fraction decreased [Recovering/Resolving]
  - Hepatic cyst [Unknown]
  - Pain [Recovering/Resolving]
  - Cough [Recovering/Resolving]
  - Endocarditis fibroplastica [Unknown]
  - Myalgia [Recovering/Resolving]
  - Blood creatine phosphokinase increased [Recovering/Resolving]
  - Asthenia [Unknown]
  - Muscle disorder [Recovering/Resolving]
  - Bronchial wall thickening [Unknown]
  - Leukocytosis [Unknown]
  - Wheezing [Unknown]
  - Muscular weakness [Recovering/Resolving]
  - Hypereosinophilic syndrome [Recovering/Resolving]
  - Bronchial hyperreactivity [Unknown]
  - Bronchial secretion retention [Unknown]

NARRATIVE: CASE EVENT DATE: 201904
